FAERS Safety Report 8517137-8 (Version None)
Quarter: 2012Q3

REPORT INFORMATION
  Report Type: 
  Country: None (occurrence: None)
  Receive Date: 20120718
  Receipt Date: 20120705
  Transmission Date: 20120928
  Serious: Yes (Death, Hospitalization, Other)
  Sender: FDA-Public Use
  Company Number: JP-MSD-2012SP025232

PATIENT

DRUGS (18)
  1. ANTIVIRAL (UNSPECIFIED) [Suspect]
     Dosage: 1500 MG, QD
     Route: 048
     Dates: start: 20120424, end: 20120507
  2. URSODIOL [Concomitant]
     Indication: HEPATITIS C
     Dosage: 200 MG, QD
     Route: 048
  3. BISOPROLOL FUMARATE [Concomitant]
     Indication: HYPERTENSION
     Dosage: 2.50 MG, QD
     Route: 048
     Dates: end: 20120324
  4. LOSARTAN POTASSIUM [Concomitant]
     Indication: HYPERTENSION
     Dosage: 50 MG, QD
     Route: 048
     Dates: start: 20120427
  5. LENDEM D [Concomitant]
     Indication: PROPHYLAXIS
     Dosage: 0.25 MG, QD
     Route: 048
     Dates: start: 20120307
  6. REBETOL [Suspect]
     Indication: HEPATITIS C
     Dosage: 600 MG, QD
     Route: 048
     Dates: start: 20120306, end: 20120318
  7. SODIUM FERROUS CITRATE [Concomitant]
     Indication: PRODUCT USED FOR UNKNOWN INDICATION
     Dosage: 100 MG, QD
     Route: 048
     Dates: start: 20120508
  8. REBETOL [Suspect]
     Dosage: 400 MG, QD
     Route: 048
     Dates: start: 20120319, end: 20120430
  9. REBAMIPIDE [Concomitant]
     Indication: PROPHYLAXIS
     Dosage: 200 MG, QD
     Route: 048
  10. EPADEL [Concomitant]
     Indication: PROPHYLAXIS
     Dosage: 1200 MG, QD
     Route: 048
     Dates: start: 20120306
  11. PROMAC (POLAPREZINC) [Concomitant]
     Indication: PROPHYLAXIS
     Dosage: UNK
     Dates: start: 20120306
  12. ELIETEN [Concomitant]
     Indication: PROPHYLAXIS
     Dosage: 10 MG, QD
     Dates: start: 20120313
  13. ANTIVIRAL (UNSPECIFIED) [Suspect]
     Indication: HEPATITIS C
     Dosage: 2250 MG, QD
     Route: 048
     Dates: start: 20120306, end: 20120423
  14. ANTIVIRAL (UNSPECIFIED) [Suspect]
     Dosage: 1000 MG, QD
     Route: 048
     Dates: start: 20120508, end: 20120508
  15. REBETOL [Suspect]
     Dosage: 400 MG, QD
     Route: 048
     Dates: start: 20120529
  16. PEGINTERFERON ALFA-2B [Suspect]
     Indication: HEPATITIS C
     Dosage: 1.80 MICROGRAM PER KILOGRAM, QW
     Route: 058
     Dates: start: 20120306, end: 20120513
  17. PEGINTERFERON ALFA-2B [Suspect]
     Dosage: 1.80 MICROGRAM PER KILOGRAM, QW
     Route: 058
     Dates: start: 20120514
  18. REBETOL [Suspect]
     Dosage: 200 MG, QD
     Route: 048
     Dates: start: 20120501, end: 20120528

REACTIONS (2)
  - RENAL IMPAIRMENT [None]
  - HAEMOGLOBIN DECREASED [None]
